FAERS Safety Report 14162686 (Version 1)
Quarter: 2017Q4

REPORT INFORMATION
  Report Type: Spontaneous
  Country: US (occurrence: US)
  Receive Date: 20171106
  Receipt Date: 20171106
  Transmission Date: 20180321
  Serious: No
  Sender: FDA-Public Use
  Company Number: US-BAYER-2017-213710

PATIENT
  Sex: Female

DRUGS (4)
  1. STOOL SOFTENER (DOCUSATE) [Concomitant]
     Active Substance: DOCUSATE
  2. CASCARA [Concomitant]
     Active Substance: RHAMNUS PURSHIANA BARK EXTRACT
  3. MIRALAX [Suspect]
     Active Substance: POLYETHYLENE GLYCOL 3350
     Route: 065
  4. PRUNUS DULCIS [Concomitant]
     Dosage: 3 DF, HS

REACTIONS (3)
  - Pain [Unknown]
  - Product use issue [Unknown]
  - Incorrect dosage administered [Unknown]
